FAERS Safety Report 11013518 (Version 2)
Quarter: 2015Q2

REPORT INFORMATION
  Report Type: Spontaneous
  Country: US (occurrence: US)
  Receive Date: 20150411
  Receipt Date: 20150525
  Transmission Date: 20150821
  Serious: Yes (Other)
  Sender: FDA-Public Use
  Company Number: US-JNJFOC-20140300138

PATIENT
  Age: 54 Year
  Sex: Male

DRUGS (3)
  1. REMICADE [Suspect]
     Active Substance: INFLIXIMAB
     Indication: ANAL FISTULA
     Route: 042
  2. REMICADE [Suspect]
     Active Substance: INFLIXIMAB
     Indication: ANAL FISTULA
     Route: 042
     Dates: start: 20130905
  3. REMICADE [Suspect]
     Active Substance: INFLIXIMAB
     Indication: ANAL FISTULA
     Route: 042
     Dates: start: 20140102

REACTIONS (4)
  - Back pain [Unknown]
  - Eructation [Unknown]
  - Chest discomfort [Unknown]
  - Infusion related reaction [Unknown]

NARRATIVE: CASE EVENT DATE: 20130905
